FAERS Safety Report 9190903 (Version 1)
Quarter: 2013Q1

REPORT INFORMATION
  Report Type: Report from Study
  Country: JP (occurrence: JP)
  Receive Date: 20130326
  Receipt Date: 20130326
  Transmission Date: 20140127
  Serious: Yes (Other)
  Sender: FDA-Public Use
  Company Number: JP-GLAXOSMITHKLINE-B0874309A

PATIENT
  Age: 56 None
  Sex: Female
  Weight: 41 kg

DRUGS (13)
  1. TYKERB [Suspect]
     Indication: BREAST CANCER
     Route: 048
     Dates: start: 20100428, end: 20100617
  2. TYKERB [Suspect]
     Indication: BREAST CANCER
     Route: 048
     Dates: start: 20100618, end: 20100628
  3. TYKERB [Suspect]
     Indication: BREAST CANCER
     Route: 048
     Dates: start: 20100713, end: 20100721
  4. TYKERB [Suspect]
     Indication: BREAST CANCER
     Route: 048
     Dates: start: 20100723
  5. ROHYPNOL [Concomitant]
     Indication: ANXIETY
     Route: 048
     Dates: end: 20100618
  6. TAKEPRON [Concomitant]
     Indication: ABDOMINAL PAIN UPPER
     Route: 048
     Dates: end: 20100618
  7. MARZULENE [Concomitant]
     Indication: ABDOMINAL PAIN UPPER
     Route: 048
     Dates: end: 20100618
  8. DEPAS [Concomitant]
     Indication: ANXIETY
     Route: 048
  9. DECADRON [Concomitant]
     Indication: TUMOUR ASSOCIATED FEVER
     Route: 048
     Dates: end: 20100618
  10. MINOFIT [Concomitant]
     Indication: LIVER DISORDER
     Route: 042
     Dates: end: 20100513
  11. LOXONIN [Concomitant]
     Indication: TUMOUR ASSOCIATED FEVER
     Route: 048
     Dates: end: 20100607
  12. PARIET [Concomitant]
     Indication: ABDOMINAL PAIN UPPER
     Route: 048
     Dates: start: 20100702, end: 201008
  13. ZOMETA [Concomitant]
     Indication: METASTASES TO BONE
     Route: 042
     Dates: start: 20091204

REACTIONS (6)
  - Henoch-Schonlein purpura [Recovering/Resolving]
  - Palmar-plantar erythrodysaesthesia syndrome [Recovering/Resolving]
  - Pain in extremity [Recovering/Resolving]
  - Diarrhoea [Recovering/Resolving]
  - Liver function test abnormal [Not Recovered/Not Resolved]
  - Sinus tachycardia [Not Recovered/Not Resolved]
